FAERS Safety Report 4622850-9 (Version None)
Quarter: 2005Q1

REPORT INFORMATION
  Report Type: 
  Country: None (occurrence: None)
  Receive Date: 20050330
  Receipt Date: 20050318
  Transmission Date: 20050727
  Serious: Yes (Other)
  Sender: FDA-Public Use
  Company Number: FR-GLAXOSMITHKLINE-B0373300B

PATIENT
  Age: 4 Year
  Sex: Male
  Weight: 17 kg

DRUGS (4)
  1. AUGMENTIN '125' [Suspect]
     Indication: NASOPHARYNGITIS
     Route: 065
     Dates: start: 20050218
  2. PRIORIX [Concomitant]
     Indication: PROPHYLAXIS
     Route: 030
     Dates: start: 20050205, end: 20050205
  3. R.O.R. VAX [Concomitant]
     Indication: PROPHYLAXIS
     Route: 065
     Dates: start: 20011201, end: 20011201
  4. ZYRTEC [Concomitant]
     Route: 048

REACTIONS (3)
  - HENOCH-SCHONLEIN PURPURA [None]
  - OEDEMA [None]
  - PURPURA [None]
